FAERS Safety Report 12901884 (Version 1)
Quarter: 2016Q4

REPORT INFORMATION
  Report Type: Spontaneous
  Country: IN (occurrence: IN)
  Receive Date: 20161102
  Receipt Date: 20161102
  Transmission Date: 20170207
  Serious: Yes (Death)
  Sender: FDA-Public Use
  Company Number: IN-ROCHE-1848937

PATIENT
  Age: 78 Year
  Sex: Female

DRUGS (1)
  1. METALYSE [Suspect]
     Active Substance: TENECTEPLASE
     Indication: MYOCARDIAL INFARCTION
     Route: 042
     Dates: start: 20161020, end: 20161020

REACTIONS (1)
  - Death [Fatal]

NARRATIVE: CASE EVENT DATE: 20161020
